FAERS Safety Report 17812001 (Version 1)
Quarter: 2020Q2

REPORT INFORMATION
  Report Type: Spontaneous
  Country: US (occurrence: US)
  Receive Date: 20200521
  Receipt Date: 20200521
  Transmission Date: 20200714
  Serious: Yes (Other)
  Sender: FDA-Public Use
  Company Number: US-BRISTOL-MYERS SQUIBB COMPANY-BMS-2020-036331

PATIENT
  Sex: Female
  Weight: 40.82 kg

DRUGS (5)
  1. HYDROXYUREA. [Suspect]
     Active Substance: HYDROXYUREA
     Indication: ESSENTIAL THROMBOCYTHAEMIA
     Dosage: THREE DAY CYCLE, DAY ONE SHE TAKES 500MG WITH A LOW DOSE ASPIRIN
     Route: 065
     Dates: start: 201905
  2. ASPIRIN [ACETYLSALICYLIC ACID] [Concomitant]
     Active Substance: ASPIRIN
     Indication: ESSENTIAL THROMBOCYTHAEMIA
     Dosage: 81 MILLIGRAM, TAKES NE TABLET DAILY BY MOUTH AFTER TAKING THE HYDROXYUREA
     Route: 048
     Dates: start: 201905
  3. HYDROXYUREA. [Suspect]
     Active Substance: HYDROXYUREA
     Indication: PRODUCT USED FOR UNKNOWN INDICATION
     Dosage: DAY THREE CALLER TAKES 1000MG WITH A LOW DOSE ASPIRIN
     Route: 065
  4. ANBESOL MAXIMUM STRENGTH LIQUID [Suspect]
     Active Substance: BENZOCAINE
     Indication: STOMATITIS
     Dosage: UNK
     Route: 065
     Dates: start: 202005
  5. HYDROXYUREA. [Suspect]
     Active Substance: HYDROXYUREA
     Indication: PRODUCT USED FOR UNKNOWN INDICATION
     Dosage: DAY TWO CALLER TAKES 1000MG WITH A LOW DOSE ASPIRIN
     Route: 065

REACTIONS (5)
  - Atrial fibrillation [Unknown]
  - Epistaxis [Unknown]
  - Stomatitis [Not Recovered/Not Resolved]
  - Intentional product use issue [Unknown]
  - Carotid artery disease [Unknown]

NARRATIVE: CASE EVENT DATE: 2020
